FAERS Safety Report 15929852 (Version 1)
Quarter: 2019Q1

REPORT INFORMATION
  Report Type: Spontaneous
  Country: US (occurrence: US)
  Receive Date: 20190206
  Receipt Date: 20190206
  Transmission Date: 20190417
  Serious: Yes (Death, Hospitalization)
  Sender: FDA-Public Use
  Company Number: US-VIFOR (INTERNATIONAL) INC.-VIT-2019-00968

PATIENT
  Age: 40 Year
  Sex: Female
  Weight: 81.4 kg

DRUGS (1)
  1. MIRCERA [Suspect]
     Active Substance: METHOXY POLYETHYLENE GLYCOL-EPOETIN BETA
     Indication: NEPHROGENIC ANAEMIA
     Route: 040
     Dates: start: 20190119, end: 20190119

REACTIONS (3)
  - Death [Fatal]
  - Foaming at mouth [Unknown]
  - Moaning [Unknown]

NARRATIVE: CASE EVENT DATE: 20190119
